FAERS Safety Report 18826706 (Version 1)
Quarter: 2021Q1

REPORT INFORMATION
  Report Type: Spontaneous
  Country: US (occurrence: US)
  Receive Date: 20210201
  Receipt Date: 20210201
  Transmission Date: 20210419
  Serious: No
  Sender: FDA-Public Use
  Company Number: US-ABBVIE-20K-163-3431553-00

PATIENT
  Age: 34 Year
  Sex: Female
  Weight: 74.91 kg

DRUGS (4)
  1. MELOXICAM. [Concomitant]
     Active Substance: MELOXICAM
     Indication: ANKYLOSING SPONDYLITIS
  2. HUMIRA [Suspect]
     Active Substance: ADALIMUMAB
     Route: 058
     Dates: end: 202005
  3. ZECAL [Concomitant]
     Indication: COLITIS ULCERATIVE
  4. HUMIRA [Suspect]
     Active Substance: ADALIMUMAB
     Indication: ANKYLOSING SPONDYLITIS
     Route: 058
     Dates: start: 201910

REACTIONS (3)
  - Device issue [Unknown]
  - Injection site haemorrhage [Recovered/Resolved]
  - Anxiety [Recovered/Resolved]

NARRATIVE: CASE EVENT DATE: 202005
